FAERS Safety Report 5815455-5 (Version None)
Quarter: 2008Q3

REPORT INFORMATION
  Report Type: 
  Country: None (occurrence: None)
  Receive Date: 20080715
  Receipt Date: 20080708
  Transmission Date: 20090109
  Serious: Yes (Death, Life-Threatening, Hospitalization)
  Sender: FDA-Public Use
  Company Number: 062-21880-08030226

PATIENT
  Age: 59 Year
  Sex: Male
  Weight: 70 kg

DRUGS (7)
  1. REVLIMID [Suspect]
     Indication: MULTIPLE MYELOMA
     Dosage: 25 MG, 3 CYCLES, ORAL; ORAL
     Route: 048
     Dates: start: 20071108, end: 20080102
  2. REVLIMID [Suspect]
     Indication: MULTIPLE MYELOMA
     Dosage: 25 MG, 3 CYCLES, ORAL; ORAL
     Route: 048
     Dates: start: 20080117, end: 20080206
  3. DEXAMETHASONE [Concomitant]
  4. DIFLUCAN [Concomitant]
  5. ENOXAPARIN SODIUM [Concomitant]
  6. MORPHINE SULFATE [Concomitant]
  7. CITALOPRAM HYDROBROMIDE [Concomitant]

REACTIONS (13)
  - BLINDNESS [None]
  - BRAIN STEM ISCHAEMIA [None]
  - CENTRAL NERVOUS SYSTEM LESION [None]
  - CEREBRAL ISCHAEMIA [None]
  - CEREBROVASCULAR ACCIDENT [None]
  - COMA [None]
  - DISTURBANCE IN ATTENTION [None]
  - EMBOLISM [None]
  - EXTENSOR PLANTAR RESPONSE [None]
  - NEUROLOGICAL SYMPTOM [None]
  - PNEUMONIA [None]
  - RESPIRATORY FAILURE [None]
  - RETINAL ISCHAEMIA [None]
